FAERS Safety Report 21922584 (Version 2)
Quarter: 2023Q1

REPORT INFORMATION
  Report Type: Report from Study
  Country: US (occurrence: US)
  Receive Date: 20230128
  Receipt Date: 20230222
  Transmission Date: 20230418
  Serious: Yes (Hospitalization)
  Sender: FDA-Public Use
  Company Number: US-TAKEDA-2023TUS009484

PATIENT
  Age: 75 Year
  Sex: Female

DRUGS (1)
  1. MARIBAVIR [Suspect]
     Active Substance: MARIBAVIR
     Indication: Renal disorder
     Dosage: 200 MILLIGRAM, BID
     Route: 048
     Dates: start: 20230130

REACTIONS (3)
  - Bacterial infection [Unknown]
  - Dysgeusia [Unknown]
  - Product use in unapproved indication [Unknown]

NARRATIVE: CASE EVENT DATE: 20230130
